FAERS Safety Report 19399445 (Version 1)
Quarter: 2021Q2

REPORT INFORMATION
  Report Type: Spontaneous
  Country: US (occurrence: US)
  Receive Date: 20210610
  Receipt Date: 20210610
  Transmission Date: 20210717
  Serious: Yes (Hospitalization)
  Sender: FDA-Public Use
  Company Number: None

PATIENT
  Age: 49 Year
  Sex: Male

DRUGS (1)
  1. DEFERASIROX 180MG [Suspect]
     Active Substance: DEFERASIROX
     Indication: SICKLE CELL DISEASE
     Route: 048
     Dates: start: 20210423

REACTIONS (2)
  - Sickle cell anaemia with crisis [None]
  - Therapy interrupted [None]

NARRATIVE: CASE EVENT DATE: 20210525
